FAERS Safety Report 8121389-6 (Version None)
Quarter: 2012Q1

REPORT INFORMATION
  Report Type: 
  Country: None (occurrence: None)
  Receive Date: 20120208
  Receipt Date: 20120201
  Transmission Date: 20120608
  Serious: No
  Sender: FDA-Public Use
  Company Number: US-PFIZER INC-2012028452

PATIENT
  Sex: Female
  Weight: 86.621 kg

DRUGS (5)
  1. AMLODIPINE BESILATE [Concomitant]
     Indication: HYPERTENSION
     Dosage: 10 MG, DAILY
  2. CELEBREX [Suspect]
     Indication: SPINAL OSTEOARTHRITIS
     Dosage: UNK
     Route: 048
  3. FLEXERIL [Concomitant]
     Indication: MUSCLE SPASMS
     Dosage: 5 MG, 2X/DAY
     Route: 048
  4. GABAPENTIN [Concomitant]
     Indication: NERVOUS SYSTEM DISORDER
     Dosage: 600 MG, 2X/DAY
     Route: 048
  5. ACETAMINOPHEN AND HYDROCODONE BITARTRATE [Concomitant]
     Indication: OSTEOARTHRITIS
     Dosage: 10/650 MG, AS NEEDED

REACTIONS (2)
  - PAIN [None]
  - CIRCUMSTANCE OR INFORMATION CAPABLE OF LEADING TO MEDICATION ERROR [None]
